FAERS Safety Report 6020275-5 (Version None)
Quarter: 2008Q4

REPORT INFORMATION
  Report Type: 
  Country: None (occurrence: None)
  Receive Date: 20081226
  Receipt Date: 20081223
  Transmission Date: 20090506
  Serious: Yes (Death, Other)
  Sender: FDA-Public Use
  Company Number: PHHY2008IN18596

PATIENT
  Age: 70 Year
  Sex: Female

DRUGS (2)
  1. ASUNRA [Suspect]
     Indication: MYELODYSPLASTIC SYNDROME
     Dosage: 20 MG/KG, UNK
     Dates: start: 20081201
  2. LENALIDOMIDE [Concomitant]

REACTIONS (2)
  - CARDIAC DISORDER [None]
  - SOMNOLENCE [None]
